FAERS Safety Report 9041233 (Version 2)
Quarter: 2013Q2

REPORT INFORMATION
  Report Type: Spontaneous
  Country: US (occurrence: None)
  Receive Date: 20130114
  Receipt Date: 20130604
  Transmission Date: 20140414
  Serious: Yes (Hospitalization)
  Sender: FDA-Public Use
  Company Number: AMAG201203160

PATIENT
  Age: 84 Year
  Sex: Male
  Weight: 54.5 kg

DRUGS (14)
  1. FERAHEME (FERUMOXYTOL) INJECTION, 510MG [Suspect]
     Indication: IRON DEFICIENCY ANAEMIA
     Route: 042
     Dates: start: 20121231, end: 20121231
  2. ASPIRIN (ACETYLSALICYLIC ACID) [Concomitant]
  3. ARANESP (DARBEPOETIN ALFA) [Concomitant]
  4. CARVEDILOL (CARVEDILOL) [Concomitant]
  5. CRESTOR (ATORVASTATIN CALCIUM) [Concomitant]
  6. HYDROXYZINE (HYDROXYZINE HYDROCHLORIDE) [Concomitant]
  7. ISOSORBIDE DINITRATE (ISOSORBIDE DINITRATE) [Concomitant]
  8. LANTUS (INSULIN GLARGINE) [Concomitant]
  9. LASIX (FUROSEMIDE SODIUM) [Concomitant]
  10. NIFEREX FORTE (CYANOCOBALAMIN, FOLIC ACID, POLYSACCHARIDE-IRON COMPLEX) [Concomitant]
  11. NOVOLOG MIX (INSULIN ASPART, INSULIN ASPART PROTAMINE) [Concomitant]
  12. OMEGA 3 (FISH OIL) [Concomitant]
  13. PRILOSEC [Concomitant]
  14. SERTRALINE (SERTRALINE) [Concomitant]

REACTIONS (13)
  - Oxygen saturation decreased [None]
  - Pruritus [None]
  - Depressed level of consciousness [None]
  - Dyspnoea [None]
  - Pulse pressure decreased [None]
  - Feeling hot [None]
  - Nausea [None]
  - Anaphylactic reaction [None]
  - Cardiac arrest [None]
  - Feeling hot [None]
  - Unresponsive to stimuli [None]
  - Dizziness [None]
  - Metabolic acidosis [None]
